FAERS Safety Report 7425923-0 (Version None)
Quarter: 2011Q2

REPORT INFORMATION
  Report Type: 
  Country: None (occurrence: None)
  Receive Date: 20110420
  Receipt Date: 20110408
  Transmission Date: 20111010
  Serious: Yes (Hospitalization)
  Sender: FDA-Public Use
  Company Number: US-ROCHE-770549

PATIENT
  Sex: Male
  Weight: 60.8 kg

DRUGS (8)
  1. PEGINTERFERON ALFA-2A [Suspect]
     Dosage: LAST DATE PRIOR TO SAE: 27 MARCH 2011, DOSE FORM: VIALS
     Route: 058
     Dates: start: 20110317, end: 20110331
  2. PEGINTERFERON ALFA-2A [Suspect]
     Route: 058
     Dates: start: 20110407
  3. RO 5190591 (ITMN-191) [Suspect]
     Dosage: LAST DOSE PRIOR TO SAE: 27 MARCH 2011
     Route: 048
     Dates: start: 20110317, end: 20110327
  4. ENALAPRIL MALEATE [Concomitant]
     Dates: start: 20050101
  5. RIBAVIRIN [Suspect]
     Route: 048
     Dates: start: 20110407
  6. AMLODIPINE [Concomitant]
     Dates: start: 20110101
  7. RIBAVIRIN [Suspect]
     Dosage: LAST DOSE PRIOR TO SAE: 27 MARCH 2011
     Route: 048
     Dates: start: 20110317, end: 20110327
  8. RITONAVIR [Suspect]
     Dosage: LAST DOSE PRIO R TO SAE: 27 MARCH 2011, PERMANENTLY DISCONTINUED.
     Route: 048
     Dates: start: 20110317, end: 20110327

REACTIONS (1)
  - PANCREATITIS ACUTE [None]
